FAERS Safety Report 4685220-3 (Version None)
Quarter: 2005Q2

REPORT INFORMATION
  Report Type: 
  Country: None (occurrence: None)
  Receive Date: 20050608
  Receipt Date: 20050517
  Transmission Date: 20051028
  Serious: Yes (Hospitalization)
  Sender: FDA-Public Use
  Company Number: US-BOEHRINGER INGELHEIM PHARMACEUTICALS, INC.-2005-BP-08157BP

PATIENT
  Age: 72 Year
  Sex: Female
  Weight: 54.5 kg

DRUGS (1)
  1. MOBIC [Suspect]
     Indication: RHEUMATOID ARTHRITIS
     Dates: start: 20050401, end: 20050505

REACTIONS (3)
  - EPISTAXIS [None]
  - PANCYTOPENIA [None]
  - THROMBOTIC THROMBOCYTOPENIC PURPURA [None]
